FAERS Safety Report 6692450-8 (Version None)
Quarter: 2010Q2

REPORT INFORMATION
  Report Type: 
  Country: None (occurrence: None)
  Receive Date: 20100422
  Receipt Date: 20100419
  Transmission Date: 20101027
  Serious: Yes (Hospitalization)
  Sender: FDA-Public Use
  Company Number: A0786508A

PATIENT
  Sex: Female

DRUGS (15)
  1. PAXIL [Suspect]
     Indication: DRUG USE FOR UNKNOWN INDICATION
     Route: 048
  2. PAXIL CR [Suspect]
     Indication: DRUG USE FOR UNKNOWN INDICATION
     Dosage: 37.5MG UNKNOWN
     Route: 048
  3. IMITREX [Suspect]
     Indication: MIGRAINE
     Dosage: 100MG AS REQUIRED
     Route: 048
     Dates: start: 19950101
  4. FLOVENT [Suspect]
     Indication: DRUG USE FOR UNKNOWN INDICATION
     Dosage: 110MCG UNKNOWN
     Route: 055
  5. VENTOLIN [Suspect]
     Indication: DRUG USE FOR UNKNOWN INDICATION
     Route: 065
  6. SEREVENT [Suspect]
     Indication: ASTHMA
     Route: 055
  7. SYNTHROID [Concomitant]
  8. XANAX [Concomitant]
  9. ROCALTROL [Concomitant]
  10. ALDACTAZIDE [Concomitant]
  11. ADVIL [Concomitant]
  12. ALPRAZOLAM [Concomitant]
  13. COMBIVENT [Concomitant]
  14. AZOPT [Concomitant]
  15. COMBIGAN [Concomitant]

REACTIONS (7)
  - CATARACT [None]
  - DIPLOPIA [None]
  - DRUG INEFFECTIVE [None]
  - ENDOTRACHEAL INTUBATION [None]
  - GLAUCOMA [None]
  - SCOTOMA [None]
  - STAPHYLOCOCCAL INFECTION [None]
